FAERS Safety Report 24553479 (Version 1)
Quarter: 2024Q4

REPORT INFORMATION
  Report Type: Report from Study
  Country: US (occurrence: US)
  Receive Date: 20241028
  Receipt Date: 20241028
  Transmission Date: 20250115
  Serious: No
  Sender: ROCHE
  Company Number: US-ROCHE-3485846

PATIENT
  Age: 9 Year
  Sex: Male

DRUGS (3)
  1. NUTROPIN AQ [Suspect]
     Active Substance: SOMATROPIN
     Indication: Short stature
     Route: 058
     Dates: end: 2023
  2. NUTROPIN AQ [Suspect]
     Active Substance: SOMATROPIN
     Indication: Endocrine disorder
  3. AMOXICILLIN [Concomitant]
     Active Substance: AMOXICILLIN

REACTIONS (5)
  - Ear infection [Unknown]
  - Off label use [Unknown]
  - Injection site pain [Recovered/Resolved]
  - Gait inability [Recovered/Resolved]
  - Paraesthesia [Recovered/Resolved]

NARRATIVE: CASE EVENT DATE: 20230701
